FAERS Safety Report 16787930 (Version 1)
Quarter: 2019Q3

REPORT INFORMATION
  Report Type: Spontaneous
  Country: CN (occurrence: CN)
  Receive Date: 20190909
  Receipt Date: 20190909
  Transmission Date: 20191005
  Serious: Yes (Hospitalization)
  Sender: FDA-Public Use
  Company Number: PHHY2019CN208251

PATIENT
  Age: 42 Year
  Sex: Female
  Weight: 50 kg

DRUGS (5)
  1. ACLASTA [Suspect]
     Active Substance: ZOLEDRONIC ACID
     Indication: PATHOLOGICAL FRACTURE
  2. CYMBALTA [Suspect]
     Active Substance: DULOXETINE HYDROCHLORIDE
     Indication: DEPRESSION
     Dosage: 30 MG, QD
     Route: 048
     Dates: start: 20190812, end: 20190816
  3. PREGABALIN. [Suspect]
     Active Substance: PREGABALIN
     Indication: PAIN
     Dosage: 75 MG, BID
     Route: 048
     Dates: start: 20190809, end: 20190819
  4. ACLASTA [Suspect]
     Active Substance: ZOLEDRONIC ACID
     Indication: OSTEOPOROSIS
     Dosage: 5 MG, Q12MO IVGGGT
     Route: 041
     Dates: start: 20190814, end: 20190814
  5. VITAMIN D DROPS [Concomitant]
     Indication: VITAMIN SUPPLEMENTATION
     Dosage: 40 U, BID
     Route: 048
     Dates: start: 20190812, end: 20190819

REACTIONS (4)
  - Pyrexia [Recovering/Resolving]
  - Dizziness [Recovering/Resolving]
  - Rash [Not Recovered/Not Resolved]
  - Pruritus [Recovering/Resolving]

NARRATIVE: CASE EVENT DATE: 20190815
